FAERS Safety Report 5233721-1 (Version None)
Quarter: 2007Q1

REPORT INFORMATION
  Report Type: 
  Country: None (occurrence: None)
  Receive Date: 20070208
  Receipt Date: 20070207
  Transmission Date: 20070707
  Serious: Yes (Hospitalization)
  Sender: FDA-Public Use
  Company Number: FR-GLAXOSMITHKLINE-B0457388A

PATIENT
  Age: 34 Year
  Sex: Male

DRUGS (1)
  1. CLAMOXYL [Suspect]
     Indication: NASOPHARYNGITIS
     Route: 048
     Dates: start: 20070102, end: 20070105

REACTIONS (6)
  - DERMATITIS EXFOLIATIVE [None]
  - OEDEMA PERIPHERAL [None]
  - PRURITUS [None]
  - PYREXIA [None]
  - RASH MACULO-PAPULAR [None]
  - TOXIC SKIN ERUPTION [None]
